FAERS Safety Report 5403392-X (Version None)
Quarter: 2007Q3

REPORT INFORMATION
  Report Type: 
  Country: None (occurrence: None)
  Receive Date: 20070718
  Receipt Date: 20060901
  Transmission Date: 20080115
  Serious: Yes (Hospitalization, Other)
  Sender: FDA-Public Use
  Company Number: 2006114850

PATIENT
  Sex: Male
  Weight: 135.1719 kg

DRUGS (2)
  1. CELEBREX [Suspect]
     Dosage: (2 IN 1 D)
  2. BEXTRA [Suspect]
     Dosage: (2 IN 1 D)

REACTIONS (3)
  - HYPERTENSION [None]
  - MYOCARDIAL INFARCTION [None]
  - RENAL FAILURE [None]
